FAERS Safety Report 7948401-9 (Version None)
Quarter: 2011Q4

REPORT INFORMATION
  Report Type: 
  Country: None (occurrence: None)
  Receive Date: 20111130
  Receipt Date: 20111123
  Transmission Date: 20120403
  Serious: Yes (Other)
  Sender: FDA-Public Use
  Company Number: US-RB-030365-11

PATIENT
  Age: 83 Year
  Sex: Female

DRUGS (5)
  1. METROPIL [Concomitant]
  2. VITAMIN D [Concomitant]
  3. DELSYM [Suspect]
     Indication: BRONCHITIS
     Route: 048
     Dates: start: 20111117
  4. COUMADIN [Concomitant]
  5. ALLOPURINOL [Concomitant]

REACTIONS (2)
  - BLOOD PRESSURE INCREASED [None]
  - HEART RATE INCREASED [None]
